FAERS Safety Report 26152389 (Version 1)
Quarter: 2025Q4

REPORT INFORMATION
  Report Type: Spontaneous
  Country: US (occurrence: US)
  Receive Date: 20251214
  Receipt Date: 20251214
  Transmission Date: 20260118
  Serious: Yes (Hospitalization, Other)
  Sender: JOHNSON AND JOHNSON
  Company Number: US-JNJFOC-20251204723

PATIENT
  Age: 66 Year
  Sex: Male

DRUGS (1)
  1. TALVEY [Suspect]
     Active Substance: TALQUETAMAB-TGVS
     Indication: Plasma cell myeloma

REACTIONS (13)
  - Cytokine release syndrome [Unknown]
  - Neuropathy peripheral [Unknown]
  - Drug ineffective [Unknown]
  - Anhidrosis [Unknown]
  - Dry skin [Unknown]
  - Onychomadesis [Unknown]
  - Alopecia [Unknown]
  - Fatigue [Unknown]
  - Skin exfoliation [Unknown]
  - Oral pain [Unknown]
  - Monoclonal immunoglobulin present [Unknown]
  - Cardiac disorder [Unknown]
  - Dandruff [Unknown]

NARRATIVE: CASE EVENT DATE: 20250501
